FAERS Safety Report 7946262-5 (Version None)
Quarter: 2011Q4

REPORT INFORMATION
  Report Type: 
  Country: None (occurrence: None)
  Receive Date: 20111129
  Receipt Date: 20111118
  Transmission Date: 20120403
  Serious: Yes (Other)
  Sender: FDA-Public Use
  Company Number: GB-JNJFOC-20111108925

PATIENT
  Age: 55 Year
  Sex: Female

DRUGS (1)
  1. REMICADE [Suspect]
     Indication: RHEUMATOID ARTHRITIS
     Dosage: SIXTH INFUSION
     Route: 042

REACTIONS (4)
  - SENSATION OF FOREIGN BODY [None]
  - INFUSION RELATED REACTION [None]
  - PRURITUS [None]
  - CHOKING SENSATION [None]
